FAERS Safety Report 10709484 (Version 2)
Quarter: 2015Q1

REPORT INFORMATION
  Report Type: Spontaneous
  Country: US (occurrence: US)
  Receive Date: 20150114
  Receipt Date: 20150130
  Transmission Date: 20150721
  Serious: Yes (Death)
  Sender: FDA-Public Use
  Company Number: US-ROCHE-1520172

PATIENT
  Age: 81 Year
  Sex: Male

DRUGS (20)
  1. BENZONATATE. [Concomitant]
     Active Substance: BENZONATATE
     Route: 065
     Dates: start: 20141215
  2. MONTELUKAST [Concomitant]
     Active Substance: MONTELUKAST SODIUM
     Route: 065
     Dates: start: 20141125
  3. PREDNISONE. [Concomitant]
     Active Substance: PREDNISONE
     Route: 065
     Dates: start: 20141021
  4. XOLAIR [Suspect]
     Active Substance: OMALIZUMAB
     Indication: ASTHMA
     Route: 058
     Dates: start: 20141124, end: 20150106
  5. AZELASTINE [Concomitant]
     Active Substance: AZELASTINE
     Route: 045
     Dates: start: 20141201
  6. METFORMIN [Concomitant]
     Active Substance: METFORMIN HYDROCHLORIDE
     Dosage: ER
     Route: 065
     Dates: start: 20141125
  7. GABAPENTIN. [Concomitant]
     Active Substance: GABAPENTIN
     Route: 065
     Dates: start: 20141020
  8. TAMSULOSIN [Concomitant]
     Active Substance: TAMSULOSIN
     Route: 065
  9. ASPIRIN. [Concomitant]
     Active Substance: ASPIRIN
     Route: 065
     Dates: start: 20140731
  10. GLIMEPIRIDE. [Concomitant]
     Active Substance: GLIMEPIRIDE
     Route: 065
     Dates: start: 20141212
  11. DULERA [Concomitant]
     Active Substance: FORMOTEROL FUMARATE DIHYDRATE\MOMETASONE FUROATE
     Dosage: 200-5 MCG
     Route: 048
     Dates: start: 20141201
  12. EPIPEN [Concomitant]
     Active Substance: EPINEPHRINE
     Route: 065
     Dates: start: 20141121
  13. BETAMETHASONE [Concomitant]
     Active Substance: BETAMETHASONE
     Route: 065
     Dates: start: 20141114
  14. PROMETHAZINE W/ CODEINE [Concomitant]
     Route: 065
     Dates: start: 20141201
  15. PROAIR HFA [Concomitant]
     Active Substance: ALBUTEROL SULFATE
     Route: 065
     Dates: start: 20141201
  16. ALFUZOSIN [Concomitant]
     Active Substance: ALFUZOSIN
     Route: 065
     Dates: start: 20141201
  17. OMEPRAZOLE. [Concomitant]
     Active Substance: OMEPRAZOLE
     Route: 065
     Dates: start: 20140906
  18. ALBUTEROL SULFATE. [Concomitant]
     Active Substance: ALBUTEROL SULFATE
     Route: 055
     Dates: start: 20141201
  19. FLUOXETINE [Concomitant]
     Active Substance: FLUOXETINE\FLUOXETINE HYDROCHLORIDE
     Route: 065
     Dates: start: 20140924
  20. SIMVASTATIN. [Concomitant]
     Active Substance: SIMVASTATIN
     Route: 065
     Dates: start: 20140814

REACTIONS (1)
  - Pneumonia influenzal [Fatal]

NARRATIVE: CASE EVENT DATE: 20150104
